FAERS Safety Report 8800865 (Version 5)
Quarter: 2013Q3

REPORT INFORMATION
  Report Type: Spontaneous
  Country: US (occurrence: US)
  Receive Date: 20120921
  Receipt Date: 20130816
  Transmission Date: 20140515
  Serious: Yes (Other)
  Sender: FDA-Public Use
  Company Number: US-PFIZER INC-2012232059

PATIENT
  Age: 60 Year
  Sex: Female
  Weight: 52.61 kg

DRUGS (5)
  1. LYRICA [Suspect]
     Indication: FIBROMYALGIA
     Dosage: 25 MG, UNK
     Route: 048
     Dates: start: 20070903
  2. LYRICA [Suspect]
     Dosage: 50 MG, UNK
     Route: 048
  3. LYRICA [Suspect]
     Dosage: 50 MG ONCE IN THE MORNING, 25MG ONCE IN THE AFTERNOON AND 50MG ONCE IN THE EVENING
     Route: 048
  4. EVISTA [Concomitant]
     Dosage: UNK
  5. CLONAZEPAM [Concomitant]
     Dosage: UNK

REACTIONS (6)
  - Limb injury [Unknown]
  - Accident [Unknown]
  - Limb discomfort [Unknown]
  - Disturbance in attention [Unknown]
  - Pain [Unknown]
  - Stress [Unknown]
